FAERS Safety Report 9307825 (Version 1)
Quarter: 2013Q2

REPORT INFORMATION
  Report Type: Report from Study
  Country: CA (occurrence: CA)
  Receive Date: 20130524
  Receipt Date: 20130524
  Transmission Date: 20140414
  Serious: Yes (Other)
  Sender: FDA-Public Use
  Company Number: CA-NAPPMUNDI-CAN-2013-0004176

PATIENT
  Sex: Male
  Weight: 67.1 kg

DRUGS (2)
  1. HYDROMORPH CONTIN [Suspect]
     Indication: PAIN IN EXTREMITY
     Dosage: 6 MG, BID
     Route: 065
     Dates: start: 201212
  2. DILAUDID [Concomitant]
     Indication: BREAKTHROUGH PAIN
     Dosage: UNK

REACTIONS (4)
  - Suicidal ideation [Unknown]
  - Depression [Unknown]
  - Mood swings [Unknown]
  - Feeling abnormal [Unknown]
